FAERS Safety Report 16813245 (Version 1)
Quarter: 2019Q3

REPORT INFORMATION
  Report Type: Report from Study
  Country: BR (occurrence: BR)
  Receive Date: 20190916
  Receipt Date: 20190916
  Transmission Date: 20191005
  Serious: Yes (Other)
  Sender: FDA-Public Use
  Company Number: PHHY2019BR079946

PATIENT
  Age: 38 Year
  Sex: Female

DRUGS (1)
  1. GILENYA [Suspect]
     Active Substance: FINGOLIMOD HYDROCHLORIDE
     Indication: PRODUCT USED FOR UNKNOWN INDICATION
     Dosage: UNK
     Route: 065
     Dates: start: 20190222

REACTIONS (11)
  - Multiple sclerosis relapse [Unknown]
  - Optic neuritis [Unknown]
  - Blindness [Unknown]
  - Erythema [Unknown]
  - Varicella [Unknown]
  - Blister [Unknown]
  - Hypersensitivity [Unknown]
  - Pruritus [Unknown]
  - Eye haemorrhage [Unknown]
  - Visual impairment [Unknown]
  - Vision blurred [Unknown]

NARRATIVE: CASE EVENT DATE: 20190402
